FAERS Safety Report 13683772 (Version 1)
Quarter: 2017Q2

REPORT INFORMATION
  Report Type: Spontaneous
  Country: US (occurrence: US)
  Receive Date: 20170623
  Receipt Date: 20170623
  Transmission Date: 20170830
  Serious: No
  Sender: FDA-Public Use
  Company Number: US-ASTELLAS-2016US050539

PATIENT
  Sex: Female

DRUGS (1)
  1. VESICARE [Suspect]
     Active Substance: SOLIFENACIN SUCCINATE
     Indication: MICTURITION URGENCY
     Route: 048

REACTIONS (4)
  - Oral pain [Recovered/Resolved]
  - Dry mouth [Recovered/Resolved]
  - Oral mucosal erythema [Recovered/Resolved]
  - Tongue disorder [Recovered/Resolved]
